FAERS Safety Report 18194993 (Version 5)
Quarter: 2020Q4

REPORT INFORMATION
  Report Type: Spontaneous
  Country: JP (occurrence: JP)
  Receive Date: 20200826
  Receipt Date: 20201117
  Transmission Date: 20210113
  Serious: Yes (Other)
  Sender: FDA-Public Use
  Company Number: JP-ROCHE-2665262

PATIENT
  Age: 57 Year
  Sex: Male

DRUGS (2)
  1. BEOVU [Suspect]
     Active Substance: BROLUCIZUMAB-DBLL
     Indication: AGE-RELATED MACULAR DEGENERATION
     Dosage: 0.05 MG
     Route: 031
  2. EYLEA [Suspect]
     Active Substance: AFLIBERCEPT
     Indication: AGE-RELATED MACULAR DEGENERATION
     Dosage: UNK
     Route: 065

REACTIONS (8)
  - Vitreous opacities [Unknown]
  - Drug hypersensitivity [Unknown]
  - Blindness [Recovered/Resolved]
  - Retinal vasculitis [Unknown]
  - Retinal artery occlusion [Unknown]
  - Keratic precipitates [Unknown]
  - Visual field defect [Unknown]
  - Retinal perivascular sheathing [Unknown]

NARRATIVE: CASE EVENT DATE: 20200813
